FAERS Safety Report 9043918 (Version 1)
Quarter: 2013Q1

REPORT INFORMATION
  Report Type: Report from Study
  Country: US (occurrence: US)
  Receive Date: 20130130
  Receipt Date: 20130130
  Transmission Date: 20140127
  Serious: No
  Sender: FDA-Public Use
  Company Number: US-ABBOTT-12P-163-0948394-00

PATIENT
  Age: 47 Year
  Sex: Female

DRUGS (12)
  1. HUMIRA 40 MG/0.8 ML PEN [Suspect]
     Indication: PSORIATIC ARTHROPATHY
     Dates: start: 201107
  2. METHOTREXATE [Concomitant]
     Indication: PSORIATIC ARTHROPATHY
     Dosage: 7.5MG WEEKLY
  3. FLEXERIL [Concomitant]
     Indication: MUSCLE RELAXANT THERAPY
     Dosage: 10MG AT NIGHT
  4. FOLIC ACID [Concomitant]
     Indication: PRODUCT USED FOR UNKNOWN INDICATION
     Dosage: 1MG DAILY
  5. RESTASIS [Concomitant]
     Indication: DRY EYE
  6. LOTEMAX [Concomitant]
     Indication: DRY EYE
  7. SPRINTEC [Concomitant]
     Indication: CONTRACEPTION
     Dosage: DAILY
  8. OTC ZYRTEC [Concomitant]
     Indication: SEASONAL ALLERGY
     Dosage: 1 TAB DAILY
  9. PROTOPIC [Concomitant]
     Indication: ROSACEA
  10. METROGEL [Concomitant]
     Indication: ROSACEA
  11. GABAPENTIN [Concomitant]
     Indication: ATTENTION DEFICIT/HYPERACTIVITY DISORDER
     Dosage: 400MG DAILY
  12. BUSPIRONE [Concomitant]
     Indication: ANXIETY

REACTIONS (1)
  - Injection site pain [Unknown]
